FAERS Safety Report 24457117 (Version 5)
Quarter: 2025Q3

REPORT INFORMATION
  Report Type: Report from Study
  Country: US (occurrence: US)
  Receive Date: 20241018
  Receipt Date: 20250903
  Transmission Date: 20251021
  Serious: Yes (Other)
  Sender: Unknown Manufacturer
  Company Number: US-MIRUM PHARMACEUTICALS, INC.-US-MIR-24-00897

PATIENT

DRUGS (7)
  1. LIVMARLI [Suspect]
     Active Substance: MARALIXIBAT CHLORIDE
     Indication: Progressive familial intrahepatic cholestasis
     Dosage: 380 MICROGRAM/KILOGRAM, BID
     Route: 048
     Dates: start: 20240816, end: 20241013
  2. LIVMARLI [Suspect]
     Active Substance: MARALIXIBAT CHLORIDE
     Dosage: 190 MICROGRAM/KILOGRAM, BID
     Route: 048
     Dates: start: 20240721, end: 20240815
  3. LIVMARLI [Suspect]
     Active Substance: MARALIXIBAT CHLORIDE
     Dosage: 190 MICROGRAM/KILOGRAM, QD
     Route: 048
     Dates: start: 20240714, end: 20240720
  4. LIVMARLI [Suspect]
     Active Substance: MARALIXIBAT CHLORIDE
     Dosage: 1 MILLILITER, BID
     Route: 048
     Dates: start: 20240605
  5. CORTICOSTEROID NOS [Concomitant]
     Active Substance: CORTICOSTEROID NOS
     Indication: Prenatal care
     Route: 065
  6. URSODIOL [Concomitant]
     Active Substance: URSODIOL
     Indication: Cholestasis of pregnancy
     Dosage: 1800 MILLIGRAM, QD
     Route: 048
  7. VITAMIN D NOS [Concomitant]
     Active Substance: CHOLECALCIFEROL\ERGOCALCIFEROL
     Indication: Supplementation therapy
     Route: 048

REACTIONS (10)
  - Meconium in amniotic fluid [Unknown]
  - Pruritus [Unknown]
  - Steatorrhoea [Recovered/Resolved]
  - Bile acids increased [Recovered/Resolved]
  - Faeces discoloured [Recovered/Resolved]
  - Vitamin K deficiency [Recovered/Resolved]
  - Vitamin A decreased [Recovered/Resolved]
  - Vitamin E decreased [Recovered/Resolved]
  - Maternal exposure during pregnancy [Unknown]
  - Drug ineffective [Unknown]

NARRATIVE: CASE EVENT DATE: 20240101
